FAERS Safety Report 6415569-5 (Version None)
Quarter: 2009Q4

REPORT INFORMATION
  Report Type: 
  Country: None (occurrence: None)
  Receive Date: 20091027
  Receipt Date: 20091022
  Transmission Date: 20100525
  Serious: Yes (Hospitalization)
  Sender: FDA-Public Use
  Company Number: FR-BRISTOL-MYERS SQUIBB COMPANY-14771752

PATIENT
  Age: 52 Year
  Sex: Female
  Weight: 110 kg

DRUGS (17)
  1. ABILIFY [Suspect]
     Dosage: 12OCT05-20JAN07;23MAR09(15MG);INCREASED TO 20 MG FROM 27MAY09.
     Route: 048
     Dates: start: 20051012
  2. DEPAKOTE [Suspect]
     Dates: end: 20090624
  3. PRAZEPAM [Concomitant]
     Indication: ANXIETY
  4. SERESTA [Concomitant]
     Indication: INSOMNIA
  5. TERALITHE [Concomitant]
  6. IMOVANE [Concomitant]
  7. METFORMIN HCL [Concomitant]
  8. GLIBENCLAMIDE [Concomitant]
     Dosage: 0.5 TABS
  9. KARDEGIC [Concomitant]
  10. TAHOR [Concomitant]
  11. COAPROVEL [Concomitant]
     Dosage: 1 DF= 150/12.5MG
  12. PROPRANOLOL HCL [Concomitant]
  13. LEVOTHYROXINE SODIUM [Concomitant]
  14. UN-ALFA [Concomitant]
  15. CALCIUM-SANDOZ [Concomitant]
  16. NEXIUM [Concomitant]
  17. CERIS [Concomitant]

REACTIONS (2)
  - DELUSION [None]
  - DRUG INEFFECTIVE [None]
